FAERS Safety Report 19323657 (Version 1)
Quarter: 2021Q2

REPORT INFORMATION
  Report Type: Spontaneous
  Country: JP (occurrence: JP)
  Receive Date: 20210528
  Receipt Date: 20210528
  Transmission Date: 20210717
  Serious: Yes (Hospitalization, Other)
  Sender: FDA-Public Use
  Company Number: JP-009507513-2105JPN001167J

PATIENT
  Age: 20 Year
  Sex: Male

DRUGS (2)
  1. ONCOVIN [Interacting]
     Active Substance: VINCRISTINE SULFATE
     Dosage: UNK
  2. NOXAFIL [Suspect]
     Active Substance: POSACONAZOLE
     Dosage: UNK
     Route: 048

REACTIONS (3)
  - Ileus [Unknown]
  - Drug level increased [Unknown]
  - Drug interaction [Unknown]
